FAERS Safety Report 18644525 (Version 2)
Quarter: 2022Q3

REPORT INFORMATION
  Report Type: Spontaneous
  Country: CA (occurrence: CA)
  Receive Date: 20201221
  Receipt Date: 20220711
  Transmission Date: 20221026
  Serious: Yes (Other)
  Sender: FDA-Public Use
  Company Number: CA-GLAXOSMITHKLINE-CA2020AMR217016

PATIENT

DRUGS (1)
  1. BENLYSTA [Suspect]
     Active Substance: BELIMUMAB
     Indication: Systemic lupus erythematosus
     Dosage: UNK
     Route: 058

REACTIONS (7)
  - Dementia Alzheimer^s type [Unknown]
  - Seizure [Unknown]
  - Oral herpes [Unknown]
  - Dyspnoea [Unknown]
  - Condition aggravated [Unknown]
  - Lung disorder [Unknown]
  - Therapeutic response unexpected [Unknown]
